FAERS Safety Report 10172749 (Version 2)
Quarter: 2014Q2

REPORT INFORMATION
  Report Type: Spontaneous
  Country: DE (occurrence: DE)
  Receive Date: 20140515
  Receipt Date: 20140611
  Transmission Date: 20141212
  Serious: Yes (Other)
  Sender: FDA-Public Use
  Company Number: DE-ROCHE-1398840

PATIENT
  Age: 70 Year
  Sex: Male
  Weight: 80 kg

DRUGS (7)
  1. AVASTIN [Suspect]
     Indication: COLON CANCER METASTATIC
     Route: 042
     Dates: end: 20140205
  2. IRINOTECAN [Suspect]
     Indication: COLON CANCER METASTATIC
     Route: 042
     Dates: end: 20140212
  3. 5-FU [Suspect]
     Indication: COLON CANCER METASTATIC
     Route: 042
     Dates: end: 20140212
  4. PANTOPRAZOLE [Concomitant]
     Indication: GASTRITIS
     Route: 048
     Dates: start: 20131029
  5. METAMIZOL [Concomitant]
     Indication: PAIN
     Route: 065
     Dates: start: 20131029
  6. CIPROFLOXACIN [Concomitant]
     Indication: INFECTION
     Route: 048
     Dates: start: 20140219
  7. TRAMADOL [Concomitant]
     Indication: PAIN
     Route: 048
     Dates: start: 20140224

REACTIONS (5)
  - Gastrointestinal necrosis [Not Recovered/Not Resolved]
  - Ileus [Recovered/Resolved with Sequelae]
  - Cachexia [Not Recovered/Not Resolved]
  - Enteritis [Unknown]
  - Peritonitis [Unknown]
